FAERS Safety Report 22376086 (Version 1)
Quarter: 2023Q2

REPORT INFORMATION
  Report Type: Spontaneous
  Country: US (occurrence: US)
  Receive Date: 20230527
  Receipt Date: 20230527
  Transmission Date: 20230722
  Serious: Yes (Other)
  Sender: FDA-Public Use
  Company Number: US-Shilpa Medicare Limited-SML-US-2023-00658

PATIENT
  Age: 69 Year
  Sex: Male

DRUGS (18)
  1. GEMCITABINE [Suspect]
     Active Substance: GEMCITABINE
     Indication: Rhabdomyosarcoma
     Route: 065
  2. GEMCITABINE [Suspect]
     Active Substance: GEMCITABINE
     Indication: Supraclavicular fossa pain
  3. GEMCITABINE [Suspect]
     Active Substance: GEMCITABINE
     Indication: Metastasis
  4. IFOSFAMIDE [Suspect]
     Active Substance: IFOSFAMIDE
     Indication: Rhabdomyosarcoma
     Route: 065
  5. IFOSFAMIDE [Suspect]
     Active Substance: IFOSFAMIDE
     Indication: Supraclavicular fossa pain
  6. IFOSFAMIDE [Suspect]
     Active Substance: IFOSFAMIDE
     Indication: Metastasis
  7. DOXORUBICIN [Suspect]
     Active Substance: DOXORUBICIN
     Indication: Rhabdomyosarcoma
     Route: 065
  8. DOXORUBICIN [Suspect]
     Active Substance: DOXORUBICIN
     Indication: Supraclavicular fossa pain
  9. DOXORUBICIN [Suspect]
     Active Substance: DOXORUBICIN
     Indication: Metastasis
  10. SOLU-MEDROL [Suspect]
     Active Substance: METHYLPREDNISOLONE SODIUM SUCCINATE
     Indication: Rhabdomyosarcoma
     Route: 065
  11. SOLU-MEDROL [Suspect]
     Active Substance: METHYLPREDNISOLONE SODIUM SUCCINATE
     Indication: Supraclavicular fossa pain
  12. SOLU-MEDROL [Suspect]
     Active Substance: METHYLPREDNISOLONE SODIUM SUCCINATE
     Indication: Metastasis
  13. PREDNISONE [Suspect]
     Active Substance: PREDNISONE
     Indication: Rhabdomyosarcoma
     Route: 065
  14. PREDNISONE [Suspect]
     Active Substance: PREDNISONE
     Indication: Supraclavicular fossa pain
  15. PREDNISONE [Suspect]
     Active Substance: PREDNISONE
     Indication: Metastasis
  16. MESNA [Suspect]
     Active Substance: MESNA
     Indication: Rhabdomyosarcoma
     Route: 065
  17. MESNA [Suspect]
     Active Substance: MESNA
     Indication: Supraclavicular fossa pain
  18. MESNA [Suspect]
     Active Substance: MESNA
     Indication: Metastasis

REACTIONS (3)
  - Tubulointerstitial nephritis [Unknown]
  - Rash morbilliform [Unknown]
  - Blood creatinine increased [Recovering/Resolving]
